FAERS Safety Report 4958729-2 (Version None)
Quarter: 2006Q1

REPORT INFORMATION
  Report Type: 
  Country: None (occurrence: None)
  Receive Date: 20060127
  Receipt Date: 20050119
  Transmission Date: 20060701
  Serious: Yes (Other)
  Sender: FDA-Public Use
  Company Number: 05-01-0083

PATIENT
  Age: 44 Year
  Sex: Female

DRUGS (4)
  1. CLOZAPINE [Suspect]
     Indication: SCHIZOAFFECTIVE DISORDER
     Dosage: 250 MG QD ORAL
     Route: 048
     Dates: start: 20040601, end: 20050114
  2. GEODON [Concomitant]
  3. EFFEXOR [Concomitant]
  4. DEPAKOTE [Concomitant]

REACTIONS (1)
  - NEUTROPENIA [None]
